FAERS Safety Report 10662671 (Version 5)
Quarter: 2015Q1

REPORT INFORMATION
  Report Type: Spontaneous
  Country: US (occurrence: US)
  Receive Date: 20141218
  Receipt Date: 20150216
  Transmission Date: 20150720
  Serious: Yes (Hospitalization, Other)
  Sender: FDA-Public Use
  Company Number: US-UNITED THERAPEUTICS-UNT-2014-012238

PATIENT
  Age: 52 Year
  Sex: Female
  Weight: 63.95 kg

DRUGS (10)
  1. REMODULIN [Suspect]
     Active Substance: TREPROSTINIL
     Dosage: 0.093 ?G/KG, CONTINUING
     Route: 058
     Dates: start: 20050913
  2. WARFARIN [Concomitant]
     Active Substance: WARFARIN
     Indication: PRODUCT USED FOR UNKNOWN INDICATION
  3. REMODULIN [Suspect]
     Active Substance: TREPROSTINIL
     Dosage: 0.093 ?G/KG, CONTINUING
     Route: 058
     Dates: start: 20051021
  4. REMODULIN [Suspect]
     Active Substance: TREPROSTINIL
     Dosage: 0.111 ?G/KG, CONTINUING
     Route: 058
     Dates: start: 20050913
  5. LETAIRIS [Concomitant]
     Active Substance: AMBRISENTAN
     Indication: PRODUCT USED FOR UNKNOWN INDICATION
  6. REMODULIN [Suspect]
     Active Substance: TREPROSTINIL
     Dosage: 0.093 ?G/KG, CONTINUING
     Route: 058
     Dates: start: 20051021
  7. ADEMPAS [Concomitant]
     Active Substance: RIOCIGUAT
     Indication: PRODUCT USED FOR UNKNOWN INDICATION
  8. REMODULIN [Suspect]
     Active Substance: TREPROSTINIL
     Indication: PULMONARY HYPERTENSION
     Dosage: 0.093 ?G/KG, CONTINUING
     Route: 058
     Dates: start: 20050111
  9. REMODULIN [Suspect]
     Active Substance: TREPROSTINIL
     Indication: PULMONARY ARTERIAL HYPERTENSION
     Dosage: 0.093 ?G/KG, CONTINUING
     Route: 058
     Dates: start: 20050111
  10. REMODULIN [Suspect]
     Active Substance: TREPROSTINIL
     Dosage: 0.093 ?G/KG, CONTINUING
     Route: 041
     Dates: start: 20050125

REACTIONS (18)
  - Pulmonary arterial pressure increased [Unknown]
  - Syncope [Unknown]
  - Clostridium difficile infection [Unknown]
  - Pain in extremity [Unknown]
  - Infusion site pain [Unknown]
  - Bronchitis [Unknown]
  - Nausea [Unknown]
  - Loss of consciousness [Unknown]
  - Diarrhoea [Unknown]
  - Abdominal discomfort [Unknown]
  - International normalised ratio increased [Unknown]
  - Gastrooesophageal reflux disease [Unknown]
  - Oxygen saturation decreased [Unknown]
  - Pain in jaw [Unknown]
  - Seizure [Unknown]
  - Decreased appetite [Unknown]
  - Headache [Unknown]
  - Infection [Unknown]

NARRATIVE: CASE EVENT DATE: 2014
